FAERS Safety Report 13039432 (Version 1)
Quarter: 2016Q4

REPORT INFORMATION
  Report Type: Report from Study
  Country: US (occurrence: US)
  Receive Date: 20161219
  Receipt Date: 20161219
  Transmission Date: 20170207
  Serious: Yes (Other)
  Sender: FDA-Public Use
  Company Number: US-MALLINCKRODT-T201606375

PATIENT
  Sex: Male

DRUGS (1)
  1. REPOSITORY CORTICOTROPIN INJECTION [Suspect]
     Active Substance: CORTICOTROPIN
     Indication: POLYMYOSITIS
     Dosage: 80U/1ML, TWICE WEEKLY FOR 10 WEEKS
     Route: 058
     Dates: start: 20161121

REACTIONS (1)
  - Mass [Unknown]

NARRATIVE: CASE EVENT DATE: 2016
